FAERS Safety Report 6845414-5 (Version None)
Quarter: 2010Q3

REPORT INFORMATION
  Report Type: 
  Country: None (occurrence: None)
  Receive Date: 20100715
  Receipt Date: 20070914
  Transmission Date: 20110219
  Serious: No
  Sender: FDA-Public Use
  Company Number: US-PFIZER INC-2007068717

PATIENT
  Sex: Female
  Weight: 74.8 kg

DRUGS (5)
  1. CHANTIX [Suspect]
     Indication: SMOKING CESSATION THERAPY
     Dates: start: 20070815, end: 20070831
  2. LOVASTATIN [Suspect]
     Indication: BLOOD CHOLESTEROL INCREASED
     Dates: start: 20070801
  3. PLAVIX [Concomitant]
  4. NORVASC [Concomitant]
  5. LISINOPRIL [Concomitant]

REACTIONS (3)
  - ANAEMIA [None]
  - BLOOD CHOLESTEROL INCREASED [None]
  - CONSTIPATION [None]
